FAERS Safety Report 24331354 (Version 5)
Quarter: 2025Q2

REPORT INFORMATION
  Report Type: Report from Study
  Country: US (occurrence: US)
  Receive Date: 20240918
  Receipt Date: 20250606
  Transmission Date: 20250717
  Serious: Yes (Hospitalization, Other)
  Sender: AUROBINDO
  Company Number: US-AUROBINDO-AUR-APL-2024-045799

PATIENT
  Age: 72 Year
  Sex: Female

DRUGS (106)
  1. BELINOSTAT [Suspect]
     Active Substance: BELINOSTAT
     Indication: Angioimmunoblastic T-cell lymphoma
     Route: 042
     Dates: start: 20240513
  2. BELINOSTAT [Suspect]
     Active Substance: BELINOSTAT
     Route: 042
     Dates: start: 20240406, end: 20240408
  3. BELINOSTAT [Suspect]
     Active Substance: BELINOSTAT
     Route: 042
     Dates: end: 20240428
  4. BELINOSTAT [Suspect]
     Active Substance: BELINOSTAT
     Route: 042
     Dates: start: 20240716, end: 20240720
  5. BELINOSTAT [Suspect]
     Active Substance: BELINOSTAT
     Route: 042
     Dates: start: 20240806, end: 20240810
  6. BELINOSTAT [Suspect]
     Active Substance: BELINOSTAT
     Route: 042
     Dates: start: 20240828
  7. BELINOSTAT [Suspect]
     Active Substance: BELINOSTAT
     Route: 042
     Dates: start: 20240514
  8. BELINOSTAT [Suspect]
     Active Substance: BELINOSTAT
     Route: 042
     Dates: start: 20240516
  9. BELINOSTAT [Suspect]
     Active Substance: BELINOSTAT
     Route: 042
     Dates: start: 20240517
  10. BELINOSTAT [Suspect]
     Active Substance: BELINOSTAT
     Route: 042
     Dates: start: 20240604
  11. BELINOSTAT [Suspect]
     Active Substance: BELINOSTAT
     Route: 042
     Dates: start: 20240605
  12. BELINOSTAT [Suspect]
     Active Substance: BELINOSTAT
     Route: 042
     Dates: start: 20240606
  13. BELINOSTAT [Suspect]
     Active Substance: BELINOSTAT
     Route: 042
     Dates: start: 20240607
  14. BELINOSTAT [Suspect]
     Active Substance: BELINOSTAT
     Route: 042
     Dates: start: 20240608
  15. BELINOSTAT [Suspect]
     Active Substance: BELINOSTAT
     Route: 042
     Dates: start: 20240624
  16. BELINOSTAT [Suspect]
     Active Substance: BELINOSTAT
     Route: 042
     Dates: start: 20240625
  17. BELINOSTAT [Suspect]
     Active Substance: BELINOSTAT
     Route: 042
     Dates: start: 20240626
  18. BELINOSTAT [Suspect]
     Active Substance: BELINOSTAT
     Route: 042
     Dates: start: 20240627
  19. BELINOSTAT [Suspect]
     Active Substance: BELINOSTAT
     Route: 042
     Dates: start: 20240628
  20. BELINOSTAT [Suspect]
     Active Substance: BELINOSTAT
     Route: 042
     Dates: start: 20240628
  21. BELINOSTAT [Suspect]
     Active Substance: BELINOSTAT
     Route: 042
     Dates: start: 20240716
  22. BELINOSTAT [Suspect]
     Active Substance: BELINOSTAT
     Route: 042
     Dates: start: 20240717
  23. BELINOSTAT [Suspect]
     Active Substance: BELINOSTAT
     Route: 042
     Dates: start: 20240718
  24. BELINOSTAT [Suspect]
     Active Substance: BELINOSTAT
     Route: 042
     Dates: start: 20240719
  25. BELINOSTAT [Suspect]
     Active Substance: BELINOSTAT
     Route: 042
     Dates: start: 20240720
  26. BELINOSTAT [Suspect]
     Active Substance: BELINOSTAT
     Route: 042
     Dates: start: 20240806
  27. BELINOSTAT [Suspect]
     Active Substance: BELINOSTAT
     Route: 042
     Dates: start: 20240807
  28. BELINOSTAT [Suspect]
     Active Substance: BELINOSTAT
     Route: 042
     Dates: start: 20240808
  29. BELINOSTAT [Suspect]
     Active Substance: BELINOSTAT
     Route: 042
     Dates: start: 20240809
  30. BELINOSTAT [Suspect]
     Active Substance: BELINOSTAT
     Route: 042
     Dates: start: 20240810
  31. BELINOSTAT [Suspect]
     Active Substance: BELINOSTAT
     Route: 042
     Dates: start: 20240827
  32. BELINOSTAT [Suspect]
     Active Substance: BELINOSTAT
     Route: 042
     Dates: start: 20240828
  33. BELINOSTAT [Suspect]
     Active Substance: BELINOSTAT
     Route: 042
     Dates: start: 20240829
  34. BELINOSTAT [Suspect]
     Active Substance: BELINOSTAT
     Route: 042
     Dates: start: 20240830
  35. BELINOSTAT [Suspect]
     Active Substance: BELINOSTAT
     Route: 042
     Dates: start: 20240831
  36. CYCLOPHOSPHAMIDE [Suspect]
     Active Substance: CYCLOPHOSPHAMIDE
     Indication: Angioimmunoblastic T-cell lymphoma
     Route: 042
     Dates: start: 20240513
  37. CYCLOPHOSPHAMIDE [Suspect]
     Active Substance: CYCLOPHOSPHAMIDE
     Route: 042
     Dates: start: 20240604, end: 20240604
  38. CYCLOPHOSPHAMIDE [Suspect]
     Active Substance: CYCLOPHOSPHAMIDE
     Route: 042
     Dates: start: 20240624, end: 20240624
  39. CYCLOPHOSPHAMIDE [Suspect]
     Active Substance: CYCLOPHOSPHAMIDE
     Route: 042
     Dates: start: 20240716, end: 20240716
  40. CYCLOPHOSPHAMIDE [Suspect]
     Active Substance: CYCLOPHOSPHAMIDE
     Route: 042
     Dates: start: 20240806, end: 20240806
  41. PREDNISONE [Suspect]
     Active Substance: PREDNISONE
     Indication: Angioimmunoblastic T-cell lymphoma
     Route: 048
     Dates: start: 20240604, end: 20240608
  42. PREDNISONE [Suspect]
     Active Substance: PREDNISONE
     Route: 048
     Dates: start: 20240624, end: 20240628
  43. PREDNISONE [Suspect]
     Active Substance: PREDNISONE
     Route: 048
     Dates: start: 20240716, end: 20240720
  44. PREDNISONE [Suspect]
     Active Substance: PREDNISONE
     Route: 048
     Dates: start: 20240806, end: 20240810
  45. PREDNISONE [Suspect]
     Active Substance: PREDNISONE
     Route: 048
     Dates: start: 20240828
  46. PREDNISONE [Suspect]
     Active Substance: PREDNISONE
     Route: 048
     Dates: start: 20240513
  47. PREDNISONE [Suspect]
     Active Substance: PREDNISONE
     Route: 048
     Dates: start: 20240514
  48. PREDNISONE [Suspect]
     Active Substance: PREDNISONE
     Route: 048
     Dates: start: 20240515
  49. PREDNISONE [Suspect]
     Active Substance: PREDNISONE
     Route: 048
     Dates: start: 20240516
  50. PREDNISONE [Suspect]
     Active Substance: PREDNISONE
     Route: 048
     Dates: start: 20240517
  51. PREDNISONE [Suspect]
     Active Substance: PREDNISONE
     Route: 048
     Dates: start: 20240604
  52. PREDNISONE [Suspect]
     Active Substance: PREDNISONE
     Route: 048
     Dates: start: 20240607
  53. PREDNISONE [Suspect]
     Active Substance: PREDNISONE
     Route: 048
     Dates: start: 20240608
  54. PREDNISONE [Suspect]
     Active Substance: PREDNISONE
     Route: 048
     Dates: start: 20240624
  55. PREDNISONE [Suspect]
     Active Substance: PREDNISONE
     Route: 048
     Dates: start: 20240625
  56. PREDNISONE [Suspect]
     Active Substance: PREDNISONE
     Route: 048
     Dates: start: 20240626
  57. PREDNISONE [Suspect]
     Active Substance: PREDNISONE
     Route: 048
     Dates: start: 20240627
  58. PREDNISONE [Suspect]
     Active Substance: PREDNISONE
     Route: 048
     Dates: start: 20240628
  59. PREDNISONE [Suspect]
     Active Substance: PREDNISONE
     Route: 048
     Dates: start: 20240716
  60. PREDNISONE [Suspect]
     Active Substance: PREDNISONE
     Route: 048
     Dates: start: 20240717
  61. PREDNISONE [Suspect]
     Active Substance: PREDNISONE
     Route: 048
     Dates: start: 20240718
  62. PREDNISONE [Suspect]
     Active Substance: PREDNISONE
     Route: 048
     Dates: start: 20240719
  63. PREDNISONE [Suspect]
     Active Substance: PREDNISONE
     Route: 048
     Dates: start: 20240720
  64. PREDNISONE [Suspect]
     Active Substance: PREDNISONE
     Route: 048
     Dates: start: 20240806
  65. PREDNISONE [Suspect]
     Active Substance: PREDNISONE
     Route: 048
     Dates: start: 20240807
  66. PREDNISONE [Suspect]
     Active Substance: PREDNISONE
     Route: 048
     Dates: start: 20240808
  67. PREDNISONE [Suspect]
     Active Substance: PREDNISONE
     Route: 048
     Dates: start: 20240809
  68. PREDNISONE [Suspect]
     Active Substance: PREDNISONE
     Route: 048
     Dates: start: 20240810
  69. PREDNISONE [Suspect]
     Active Substance: PREDNISONE
     Route: 048
     Dates: start: 20240827
  70. PREDNISONE [Suspect]
     Active Substance: PREDNISONE
     Route: 048
     Dates: start: 20240828
  71. PREDNISONE [Suspect]
     Active Substance: PREDNISONE
     Route: 048
     Dates: start: 20240829
  72. PREDNISONE [Suspect]
     Active Substance: PREDNISONE
     Route: 048
     Dates: start: 20240830
  73. PREDNISONE [Suspect]
     Active Substance: PREDNISONE
     Route: 048
     Dates: start: 20240831
  74. DOXORUBICIN [Suspect]
     Active Substance: DOXORUBICIN
     Indication: Angioimmunoblastic T-cell lymphoma
     Route: 042
     Dates: start: 20240604, end: 20240604
  75. DOXORUBICIN [Suspect]
     Active Substance: DOXORUBICIN
     Route: 042
     Dates: start: 20240624, end: 20240624
  76. DOXORUBICIN [Suspect]
     Active Substance: DOXORUBICIN
     Route: 042
     Dates: start: 20240716, end: 20240716
  77. DOXORUBICIN [Suspect]
     Active Substance: DOXORUBICIN
     Route: 042
     Dates: start: 20240806, end: 20240806
  78. DOXORUBICIN [Suspect]
     Active Substance: DOXORUBICIN
     Route: 042
     Dates: start: 20240513
  79. ONCOVIN [Suspect]
     Active Substance: VINCRISTINE SULFATE
     Indication: Angioimmunoblastic T-cell lymphoma
     Route: 042
     Dates: start: 20240604, end: 20240604
  80. ONCOVIN [Suspect]
     Active Substance: VINCRISTINE SULFATE
     Route: 042
     Dates: start: 20240624, end: 20240624
  81. ONCOVIN [Suspect]
     Active Substance: VINCRISTINE SULFATE
     Route: 042
     Dates: start: 20240716, end: 20240716
  82. ONCOVIN [Suspect]
     Active Substance: VINCRISTINE SULFATE
     Route: 042
     Dates: start: 20240806, end: 20240806
  83. ONCOVIN [Suspect]
     Active Substance: VINCRISTINE SULFATE
     Route: 042
     Dates: start: 20240513
  84. FOLVITE [Concomitant]
     Active Substance: FOLIC ACID
     Indication: Product used for unknown indication
     Route: 065
     Dates: start: 20240423
  85. LIPITOR [Concomitant]
     Active Substance: ATORVASTATIN CALCIUM
     Indication: Hypertension
     Dosage: 40 MILLIGRAM, ONCE A DAY
     Route: 048
     Dates: start: 20240418
  86. GLUCOPHAGE [Concomitant]
     Active Substance: METFORMIN HYDROCHLORIDE
     Indication: Diabetes mellitus
     Dosage: 500 MILLIGRAM, ONCE A DAY
     Route: 048
     Dates: start: 20240418
  87. DOCUSATE SODIUM [Concomitant]
     Active Substance: DOCUSATE SODIUM
     Indication: Constipation
     Dosage: 100 MILLIGRAM, TWO TIMES A DAY
     Route: 048
     Dates: start: 20240524
  88. NORVASC [Concomitant]
     Active Substance: AMLODIPINE BESYLATE
     Indication: Hypertension
     Route: 065
     Dates: start: 20240417, end: 20240906
  89. NORVASC [Concomitant]
     Active Substance: AMLODIPINE BESYLATE
     Dosage: 10 MILLIGRAM, ONCE A DAY
     Route: 048
     Dates: start: 20240419
  90. NORVASC [Concomitant]
     Active Substance: AMLODIPINE BESYLATE
     Dosage: 5 MILLIGRAM, ONCE A DAY
     Route: 048
     Dates: start: 20240907, end: 20241012
  91. ENTECAVIR [Concomitant]
     Active Substance: ENTECAVIR
     Indication: Product used for unknown indication
     Dosage: 0.5 MILLIGRAM, ONCE A DAY
     Route: 048
     Dates: start: 20240428, end: 20240430
  92. PREDNISONE [Concomitant]
     Active Substance: PREDNISONE
     Indication: Retroperitoneal lymphadenopathy
     Dosage: 60 MILLIGRAM, ONCE A DAY
     Route: 048
     Dates: start: 20240426, end: 20240430
  93. PREDNISONE [Concomitant]
     Active Substance: PREDNISONE
     Indication: Abdominal pain
  94. INSULIN NOS [Concomitant]
     Active Substance: INSULIN NOS
     Indication: Retroperitoneal lymphadenopathy
     Dosage: 2 UNK, FOUR TIMES/DAY
     Route: 058
     Dates: start: 20240426, end: 20240430
  95. INSULIN NOS [Concomitant]
     Active Substance: INSULIN NOS
     Indication: Abdominal pain
  96. OXYCODONE [Concomitant]
     Active Substance: OXYCODONE
     Indication: Retroperitoneal lymphadenopathy
     Route: 048
     Dates: start: 20240426, end: 20240430
  97. OXYCODONE [Concomitant]
     Active Substance: OXYCODONE
     Indication: Abdominal pain
  98. POLYETHYLENE GLYCOL 3350 [Concomitant]
     Active Substance: POLYETHYLENE GLYCOL 3350
     Indication: Constipation
     Dosage: 17 GRAM, TWO TIMES A DAY
     Route: 048
     Dates: start: 20240524
  99. BENZONATATE [Concomitant]
     Active Substance: BENZONATATE
     Indication: Retroperitoneal lymphadenopathy
     Route: 048
     Dates: start: 20240427, end: 20240430
  100. BENZONATATE [Concomitant]
     Active Substance: BENZONATATE
     Indication: Abdominal pain
  101. ALBUTEROL [Concomitant]
     Active Substance: ALBUTEROL
     Indication: Retroperitoneal lymphadenopathy
     Dates: start: 20240427, end: 20240427
  102. ALBUTEROL [Concomitant]
     Active Substance: ALBUTEROL
     Indication: Abdominal pain
  103. ACETAMINOPHEN [Concomitant]
     Active Substance: ACETAMINOPHEN
     Indication: Retroperitoneal lymphadenopathy
     Route: 048
     Dates: start: 20240430, end: 20240430
  104. ACETAMINOPHEN [Concomitant]
     Active Substance: ACETAMINOPHEN
     Indication: Abdominal pain
  105. PANTOPRAZOLE [Concomitant]
     Active Substance: PANTOPRAZOLE
     Indication: Retroperitoneal lymphadenopathy
     Dosage: 40 MILLIGRAM, ONCE A DAY
     Route: 048
     Dates: start: 20240427, end: 20240430
  106. PANTOPRAZOLE [Concomitant]
     Active Substance: PANTOPRAZOLE
     Indication: Abdominal pain

REACTIONS (1)
  - Febrile neutropenia [Recovered/Resolved]

NARRATIVE: CASE EVENT DATE: 20240904
